FAERS Safety Report 4796259-1 (Version None)
Quarter: 2005Q4

REPORT INFORMATION
  Report Type: 
  Country: None (occurrence: None)
  Receive Date: 20051011
  Receipt Date: 20050926
  Transmission Date: 20060501
  Serious: Yes (Other)
  Sender: FDA-Public Use
  Company Number: 2005099120

PATIENT
  Sex: Female

DRUGS (8)
  1. DILANTIN [Suspect]
     Indication: CONVULSION
     Dosage: 400 MG (200 MG, 2 IN 1 D), ORAL
     Route: 048
     Dates: start: 19930528
  2. FERROUS SULFATE TAB [Suspect]
     Indication: IRON DEFICIENCY ANAEMIA
     Dosage: 292.5 MG (97.5 MG, 3 IN 1 HR), ORAL
     Route: 048
     Dates: start: 20050613
  3. SYNTHROID [Suspect]
  4. DOCUSATE SODIUM (DOCUSATE SODIUM) [Concomitant]
  5. MULTIVITAMIN [Concomitant]
  6. ACTONEL [Concomitant]
  7. OYSTER SHELL CALCIUM (CALCIUM CARBOANTE) [Concomitant]
  8. SENNA (SENNA) [Concomitant]

REACTIONS (8)
  - ANAEMIA [None]
  - ANTICONVULSANT DRUG LEVEL DECREASED [None]
  - CONSTIPATION [None]
  - CONVULSION [None]
  - DRUG INTERACTION [None]
  - HYPOTHYROIDISM [None]
  - IRON DEFICIENCY ANAEMIA [None]
  - OSTEOPOROSIS [None]
